FAERS Safety Report 15637291 (Version 1)
Quarter: 2018Q4

REPORT INFORMATION
  Report Type: Spontaneous
  Country: US (occurrence: US)
  Receive Date: 20181120
  Receipt Date: 20181120
  Transmission Date: 20190205
  Serious: No
  Sender: FDA-Public Use
  Company Number: US-JNJFOC-20180432639

PATIENT
  Age: 74 Year
  Sex: Male

DRUGS (20)
  1. TAMSULOSIN [Concomitant]
     Active Substance: TAMSULOSIN
  2. ACETYLSALICYLIC ACID [Concomitant]
     Active Substance: ASPIRIN
  3. ZINC. [Concomitant]
     Active Substance: ZINC
  4. IMBRUVICA [Suspect]
     Active Substance: IBRUTINIB
     Indication: MANTLE CELL LYMPHOMA
     Route: 048
  5. IMBRUVICA [Suspect]
     Active Substance: IBRUTINIB
     Indication: MANTLE CELL LYMPHOMA
     Route: 048
  6. SOTALOL. [Concomitant]
     Active Substance: SOTALOL
  7. GLIMEPIRIDE. [Concomitant]
     Active Substance: GLIMEPIRIDE
  8. ASCORBIC ACID. [Concomitant]
     Active Substance: ASCORBIC ACID
  9. LYRICA [Concomitant]
     Active Substance: PREGABALIN
  10. SAW PALMETTO [Concomitant]
     Active Substance: HERBALS\SAW PALMETTO
  11. FUROSEMIDE. [Concomitant]
     Active Substance: FUROSEMIDE
  12. VOLTAREN [Concomitant]
     Active Substance: DICLOFENAC SODIUM
  13. CENTRUM [Concomitant]
     Active Substance: VITAMINS
  14. AMLODIPINE [Concomitant]
     Active Substance: AMLODIPINE BESYLATE
  15. ALLEGRA [Concomitant]
     Active Substance: FEXOFENADINE HYDROCHLORIDE
  16. FISH OIL [Concomitant]
     Active Substance: FISH OIL
  17. KLOR-CON [Concomitant]
     Active Substance: POTASSIUM CHLORIDE
  18. METAXALONE. [Concomitant]
     Active Substance: METAXALONE
  19. METFORMIN [Concomitant]
     Active Substance: METFORMIN HYDROCHLORIDE
  20. ROPINIROLE. [Concomitant]
     Active Substance: ROPINIROLE

REACTIONS (2)
  - Platelet count decreased [Not Recovered/Not Resolved]
  - Influenza [Not Recovered/Not Resolved]

NARRATIVE: CASE EVENT DATE: 201804
